FAERS Safety Report 17587099 (Version 1)
Quarter: 2020Q1

REPORT INFORMATION
  Report Type: Spontaneous
  Country: ES (occurrence: ES)
  Receive Date: 20200326
  Receipt Date: 20200326
  Transmission Date: 20200409
  Serious: Yes (Other)
  Sender: FDA-Public Use
  Company Number: ES-MYLANLABS-2020M1031735

PATIENT
  Age: 67 Year
  Sex: Female

DRUGS (1)
  1. OLMESARTAN MEDOXOMIL. [Suspect]
     Active Substance: OLMESARTAN MEDOXOMIL
     Indication: HYPERTENSION
     Dosage: UNK

REACTIONS (10)
  - Gastrointestinal disorder [Recovered/Resolved]
  - Eosinophil count [Recovered/Resolved]
  - Coeliac disease [Recovered/Resolved]
  - Lymphocytic infiltration [Recovered/Resolved]
  - Diarrhoea [Recovered/Resolved]
  - Enteritis [Recovered/Resolved]
  - Gastritis erosive [Recovered/Resolved]
  - Intestinal villi atrophy [Recovered/Resolved]
  - Iron deficiency anaemia [Recovered/Resolved]
  - Weight decreased [Unknown]
